FAERS Safety Report 15337449 (Version 1)
Quarter: 2018Q3

REPORT INFORMATION
  Report Type: Spontaneous
  Country: US (occurrence: US)
  Receive Date: 20180827
  Receipt Date: 20180827
  Transmission Date: 20181010
  Serious: No
  Sender: FDA-Public Use
  Company Number: None

PATIENT
  Age: 66 Year
  Sex: Female

DRUGS (1)
  1. OTEZLA [Suspect]
     Active Substance: APREMILAST
     Indication: PSORIASIS
     Dosage: TAJE 1 TABKET BY MOUTH TWICE DAILY AS DIRECTED.
     Route: 048
     Dates: start: 201712

REACTIONS (2)
  - Gastrointestinal neoplasm [None]
  - Liver abscess [None]
